FAERS Safety Report 14684248 (Version 3)
Quarter: 2019Q1

REPORT INFORMATION
  Report Type: Report from Study
  Country: FR (occurrence: FR)
  Receive Date: 20180327
  Receipt Date: 20190206
  Transmission Date: 20190417
  Serious: Yes (Hospitalization)
  Sender: FDA-Public Use
  Company Number: FR-ASTELLAS-2018US014268

PATIENT
  Age: 71 Year
  Sex: Male
  Weight: 65 kg

DRUGS (1)
  1. ENZALUTAMIDE [Suspect]
     Active Substance: ENZALUTAMIDE
     Indication: PROSTATE CANCER
     Route: 048
     Dates: start: 20170302, end: 20170428

REACTIONS (3)
  - Epilepsy [Recovered/Resolved]
  - Asthenia [Not Recovered/Not Resolved]
  - Cerebral haematoma [Recovered/Resolved]

NARRATIVE: CASE EVENT DATE: 20170316
